FAERS Safety Report 5067005-1 (Version None)
Quarter: 2006Q3

REPORT INFORMATION
  Report Type: 
  Country: None (occurrence: None)
  Receive Date: 20060713
  Receipt Date: 20060221
  Transmission Date: 20061208
  Serious: Yes (Other)
  Sender: FDA-Public Use
  Company Number: 248817

PATIENT
  Age: 56 Year
  Sex: Female

DRUGS (6)
  1. ACTIVELLA [Suspect]
     Indication: MENOPAUSAL SYMPTOMS
     Dates: start: 19900101, end: 19980101
  2. ACTIVELLA [Suspect]
     Indication: MENOPAUSAL SYMPTOMS
     Dates: start: 20020101, end: 20030101
  3. PREMPRO [Suspect]
     Indication: MENOPAUSAL SYMPTOMS
     Dates: start: 19980101, end: 20020101
  4. PREMPRO [Suspect]
     Indication: MENOPAUSAL SYMPTOMS
     Dates: start: 20020101, end: 20030101
  5. PROVERA [Suspect]
     Indication: MENOPAUSAL SYMPTOMS
     Dates: start: 19890101, end: 19900101
  6. PREMARIN [Suspect]
     Indication: MENOPAUSAL SYMPTOMS
     Dates: start: 19890101, end: 19900101

REACTIONS (1)
  - BREAST CANCER [None]
